FAERS Safety Report 7054642-8 (Version None)
Quarter: 2010Q4

REPORT INFORMATION
  Report Type: 
  Country: None (occurrence: None)
  Receive Date: 20101015
  Receipt Date: 20100930
  Transmission Date: 20110411
  Serious: Yes (Hospitalization)
  Sender: FDA-Public Use
  Company Number: D1004622

PATIENT
  Age: 86 Year
  Sex: Female

DRUGS (6)
  1. JANTOVEN [Suspect]
     Indication: PRODUCT USED FOR UNKNOWN INDICATION
     Dosage: 2MG, EVERY T, W, TH, SA, SU, ORAL
     Route: 048
     Dates: start: 20030101
  2. SYNTHROID [Concomitant]
  3. LASIX [Concomitant]
  4. SPIRONOLACTONE [Concomitant]
  5. PRILOSEC (OMEPRAZOLE) [Concomitant]
  6. SIMVASTATIN [Concomitant]

REACTIONS (5)
  - IMPAIRED HEALING [None]
  - LIMB INJURY [None]
  - OPEN WOUND [None]
  - POOR PERIPHERAL CIRCULATION [None]
  - STAPHYLOCOCCUS TEST POSITIVE [None]
